FAERS Safety Report 22643015 (Version 1)
Quarter: 2023Q2

REPORT INFORMATION
  Report Type: Spontaneous
  Country: US (occurrence: US)
  Receive Date: 20230627
  Receipt Date: 20230627
  Transmission Date: 20230721
  Serious: No
  Sender: FDA-Public Use
  Company Number: US-ALCON LABORATORIES-ALC2022US002776

PATIENT

DRUGS (1)
  1. PATADAY ONCE DAILY RELIEF [Suspect]
     Active Substance: OLOPATADINE HYDROCHLORIDE
     Indication: Feeling of relaxation
     Dosage: UNK
     Route: 047

REACTIONS (3)
  - Patient dissatisfaction with treatment [Unknown]
  - Eye discharge [Recovered/Resolved]
  - Ocular discomfort [Recovered/Resolved]
